FAERS Safety Report 24795329 (Version 1)
Quarter: 2024Q4

REPORT INFORMATION
  Report Type: Report from Study
  Country: FR (occurrence: FR)
  Receive Date: 20241231
  Receipt Date: 20241231
  Transmission Date: 20250115
  Serious: Yes (Hospitalization)
  Sender: NOVARTIS
  Company Number: FR-002147023-NVSC2024FR246360

PATIENT
  Age: 55 Year
  Sex: Female

DRUGS (3)
  1. KISQALI [Suspect]
     Active Substance: RIBOCICLIB
     Indication: Product used for unknown indication
     Dosage: 600 MG
     Route: 065
     Dates: start: 20241204
  2. PREDNISOLONE [Concomitant]
     Active Substance: PREDNISOLONE
     Indication: Spinal cord infection
     Dosage: 20 MG, QD
     Route: 048
     Dates: start: 20241128
  3. LANSOPRAZOLE [Concomitant]
     Active Substance: LANSOPRAZOLE
     Indication: Gastroduodenal ulcer
     Dosage: 30 MG, QD
     Route: 048
     Dates: start: 20241111

REACTIONS (1)
  - Tumour pain [Not Recovered/Not Resolved]

NARRATIVE: CASE EVENT DATE: 20241216
